FAERS Safety Report 9411893 (Version 1)
Quarter: 2013Q3

REPORT INFORMATION
  Report Type: Spontaneous
  Country: BR (occurrence: BR)
  Receive Date: 20130722
  Receipt Date: 20130722
  Transmission Date: 20140515
  Serious: Yes (Other)
  Sender: FDA-Public Use
  Company Number: PHHY2013BR077249

PATIENT
  Age: 11 Year
  Sex: Female
  Weight: 53 kg

DRUGS (2)
  1. RITALINA [Suspect]
     Indication: CENTRAL AUDITORY PROCESSING DISORDER
     Dosage: 0.5 DF, QD
     Dates: start: 201205
  2. RITALINA [Suspect]
     Indication: OFF LABEL USE
     Dosage: 2 DF, QD
     Dates: end: 201212

REACTIONS (2)
  - Thyroid disorder [Recovering/Resolving]
  - Drug ineffective [Unknown]
